FAERS Safety Report 11412623 (Version 1)
Quarter: 2015Q3

REPORT INFORMATION
  Report Type: Spontaneous
  Country: US (occurrence: US)
  Receive Date: 20150821
  Receipt Date: 20150821
  Transmission Date: 20151125
  Serious: No
  Sender: FDA-Public Use
  Company Number: US-ELI_LILLY_AND_COMPANY-US201203002286

PATIENT
  Age: 72 Year
  Sex: Female

DRUGS (8)
  1. HUMULIN N [Suspect]
     Active Substance: INSULIN HUMAN
     Dosage: 76 U, EACH EVENING
     Dates: start: 2002
  2. HUMULIN N [Suspect]
     Active Substance: INSULIN HUMAN
     Dosage: 76 U, EACH EVENING
     Dates: start: 2002
  3. HUMULIN N [Suspect]
     Active Substance: INSULIN HUMAN
     Indication: DIABETES MELLITUS
     Dosage: 72 U, EACH MORNING
     Dates: start: 2002
  4. HUMULIN N [Suspect]
     Active Substance: INSULIN HUMAN
     Dosage: 72 U, EACH MORNING
     Dates: start: 2002
  5. HUMULIN L [Suspect]
     Active Substance: INSULIN HUMAN
     Dosage: UNK
  6. FISH OIL [Concomitant]
     Active Substance: FISH OIL
  7. HUMULIN N [Suspect]
     Active Substance: INSULIN HUMAN
     Dosage: 76 U, EACH EVENING
     Dates: start: 2002
  8. HUMULIN N [Suspect]
     Active Substance: INSULIN HUMAN
     Dosage: 72 U, EACH MORNING
     Dates: start: 2002

REACTIONS (4)
  - Blood glucose increased [Recovered/Resolved]
  - Cataract [Unknown]
  - Drug ineffective [Unknown]
  - Blood glucose increased [Unknown]

NARRATIVE: CASE EVENT DATE: 20120306
